FAERS Safety Report 10147464 (Version 1)
Quarter: 2014Q2

REPORT INFORMATION
  Report Type: Spontaneous
  Country: US (occurrence: US)
  Receive Date: 20140501
  Receipt Date: 20140501
  Transmission Date: 20141212
  Serious: No
  Sender: FDA-Public Use
  Company Number: US-ASTRAZENECA-2013SE49345

PATIENT
  Sex: Female

DRUGS (2)
  1. PRILOSEC OTC [Suspect]
     Route: 048
  2. ALIGN DIETARY SUPPLEMENT [Suspect]
     Route: 061
     Dates: start: 20130605, end: 20130605

REACTIONS (4)
  - Skin injury [Recovering/Resolving]
  - Pruritus generalised [Recovering/Resolving]
  - Rash [Recovering/Resolving]
  - Urticaria [Recovering/Resolving]
